FAERS Safety Report 8365436-5 (Version None)
Quarter: 2012Q2

REPORT INFORMATION
  Report Type: 
  Country: None (occurrence: None)
  Receive Date: 20120516
  Receipt Date: 20120516
  Transmission Date: 20120825
  Serious: Yes (Other)
  Sender: FDA-Public Use
  Company Number: FI-PFIZER INC-2012054986

PATIENT
  Sex: Female

DRUGS (2)
  1. LYRICA [Suspect]
     Indication: NEURALGIA
     Dosage: 150 MG, 2X/DAY
     Dates: start: 20120101
  2. PANACOD [Concomitant]

REACTIONS (3)
  - RESPIRATORY TRACT INFECTION [None]
  - AGEUSIA [None]
  - ANOSMIA [None]
